FAERS Safety Report 5077832-2 (Version None)
Quarter: 2006Q3

REPORT INFORMATION
  Report Type: 
  Country: None (occurrence: None)
  Receive Date: 20060810
  Receipt Date: 20060727
  Transmission Date: 20061208
  Serious: Yes (Hospitalization)
  Sender: FDA-Public Use
  Company Number: HQWYE484528JUL06

PATIENT
  Sex: Female
  Weight: 42 kg

DRUGS (6)
  1. ENBREL [Suspect]
     Indication: RHEUMATOID ARTHRITIS
     Route: 058
     Dates: start: 20051108, end: 20051222
  2. ALUMINIUM HYDROXIDE/MAGNESIUM HYDROXIDE [Concomitant]
     Dosage: UNKNOWN
     Route: 061
  3. TERNELIN [Concomitant]
     Dosage: UNKNOWN
     Route: 048
  4. MERISLON [Concomitant]
     Dosage: UNKNOWN
     Route: 048
  5. MEDROL [Concomitant]
     Indication: RHEUMATOID ARTHRITIS
     Dosage: UNKNOWN
     Route: 048
  6. CYANOCOBALAMIN [Concomitant]
     Dosage: UNKNOWN
     Route: 048

REACTIONS (4)
  - BLOOD CREATININE INCREASED [None]
  - BLOOD UREA INCREASED [None]
  - URTICARIA [None]
  - WHITE BLOOD CELL COUNT DECREASED [None]
